FAERS Safety Report 9719001 (Version 2)
Quarter: 2013Q4

REPORT INFORMATION
  Report Type: Spontaneous
  Country: US (occurrence: US)
  Receive Date: 20131127
  Receipt Date: 20131127
  Transmission Date: 20140711
  Serious: No
  Sender: FDA-Public Use
  Company Number: US-GILEAD-2013-0087097

PATIENT
  Age: 85 Year
  Sex: Male

DRUGS (2)
  1. RANEXA [Suspect]
     Indication: ANGINA PECTORIS
     Dosage: 1000 MG, BID
     Route: 048
     Dates: start: 20110923
  2. RANEXA [Suspect]
     Dosage: 1 TAB QD, UNK
     Route: 048

REACTIONS (1)
  - Underdose [Recovered/Resolved]
